FAERS Safety Report 5859795-2 (Version None)
Quarter: 2008Q3

REPORT INFORMATION
  Report Type: 
  Country: None (occurrence: None)
  Receive Date: 20080827
  Receipt Date: 20080819
  Transmission Date: 20090109
  Serious: Yes (Hospitalization)
  Sender: FDA-Public Use
  Company Number: US-MERCK-0808USA03984

PATIENT
  Age: 80 Year

DRUGS (3)
  1. JANUVIA [Suspect]
     Indication: DIABETES MELLITUS
     Route: 048
  2. [THERAPY UNSPECIFIED] [Concomitant]
     Route: 065
  3. INSULIN [Concomitant]
     Route: 065

REACTIONS (1)
  - CARDIOVASCULAR DISORDER [None]
